FAERS Safety Report 5349607-8 (Version None)
Quarter: 2007Q2

REPORT INFORMATION
  Report Type: 
  Country: None (occurrence: None)
  Receive Date: 20070607
  Receipt Date: 20070528
  Transmission Date: 20071010
  Serious: Yes (Life-Threatening, Hospitalization, Other)
  Sender: FDA-Public Use
  Company Number: IT-JNJFOC-20070106978

PATIENT
  Sex: Female
  Weight: 54 kg

DRUGS (10)
  1. TMC114 [Suspect]
     Route: 048
  2. TMC114 [Suspect]
     Indication: HIV INFECTION
     Dosage: TEMPORARY STOP
     Route: 048
  3. RITONAVIR [Suspect]
     Indication: HIV INFECTION
     Route: 048
  4. LEVOMEPROMAZINE MALEATE [Concomitant]
     Route: 065
  5. ENFUVIRTIDE [Concomitant]
     Indication: HIV INFECTION
     Route: 058
  6. STAVUDINE [Concomitant]
     Indication: HIV INFECTION
     Route: 048
  7. TENOFOVIR [Concomitant]
     Indication: HIV INFECTION
     Route: 048
  8. OLANZAPINE [Concomitant]
     Route: 065
  9. CONTRIMOXAZOLE [Concomitant]
     Route: 065
  10. GANCICLOVIR [Concomitant]
     Route: 042

REACTIONS (3)
  - CYTOMEGALOVIRUS MYOCARDITIS [None]
  - EXTRASYSTOLES [None]
  - TACHYCARDIA [None]
